FAERS Safety Report 20583317 (Version 1)
Quarter: 2022Q1

REPORT INFORMATION
  Report Type: Spontaneous
  Country: US (occurrence: US)
  Receive Date: 20220311
  Receipt Date: 20220311
  Transmission Date: 20220424
  Serious: No
  Sender: FDA-Public Use
  Company Number: US-FOUNDATIONCONSUMERHC-2022-US-000050

PATIENT
  Age: 29 Year
  Sex: Female
  Weight: 68.04 kg

DRUGS (1)
  1. AFTERA [Suspect]
     Active Substance: LEVONORGESTREL
     Indication: Post coital contraception
     Dosage: 1.5 MG
     Route: 048
     Dates: start: 20211203, end: 20211203

REACTIONS (1)
  - Menstruation delayed [Recovered/Resolved]

NARRATIVE: CASE EVENT DATE: 20211215
